FAERS Safety Report 16912174 (Version 2)
Quarter: 2019Q4

REPORT INFORMATION
  Report Type: Report from Study
  Country: None (occurrence: BR)
  Receive Date: 20191014
  Receipt Date: 20191016
  Transmission Date: 20200122
  Serious: Yes (Other)
  Sender: FDA-Public Use
  Company Number: BR-ABBVIE-19K-020-2955578-00

PATIENT
  Age: 60 Year
  Sex: Female
  Weight: 76 kg

DRUGS (1)
  1. HUMIRA [Suspect]
     Active Substance: ADALIMUMAB
     Indication: RHEUMATOID ARTHRITIS
     Route: 058
     Dates: start: 20180907, end: 20190919

REACTIONS (17)
  - Tooth extraction [Recovering/Resolving]
  - Mouth ulceration [Recovering/Resolving]
  - Post procedural complication [Recovering/Resolving]
  - Swollen tongue [Unknown]
  - Dental implantation [Recovering/Resolving]
  - Pain in extremity [Unknown]
  - Post procedural swelling [Recovering/Resolving]
  - Sneezing [Unknown]
  - Malaise [Unknown]
  - Hypoaesthesia [Unknown]
  - Influenza [Unknown]
  - Feeding disorder [Unknown]
  - Arthralgia [Unknown]
  - Procedural pain [Recovering/Resolving]
  - Gingival disorder [Recovering/Resolving]
  - Procedural headache [Recovering/Resolving]
  - Impaired healing [Unknown]

NARRATIVE: CASE EVENT DATE: 2019
